FAERS Safety Report 22735923 (Version 2)
Quarter: 2024Q3

REPORT INFORMATION
  Report Type: Spontaneous
  Country: US (occurrence: US)
  Receive Date: 20230721
  Receipt Date: 20240720
  Transmission Date: 20241017
  Serious: No
  Sender: AMNEAL
  Company Number: US-AMNEAL PHARMACEUTICALS-2023-AMRX-01852

PATIENT
  Sex: Female

DRUGS (1)
  1. ADRENACLICK [Suspect]
     Active Substance: EPINEPHRINE
     Indication: Product used for unknown indication
     Dosage: 0.3 MILLIGRAM
     Route: 065

REACTIONS (2)
  - Device leakage [Unknown]
  - No adverse event [Unknown]
